FAERS Safety Report 4401638-8 (Version None)
Quarter: 2004Q3

REPORT INFORMATION
  Report Type: 
  Country: None (occurrence: None)
  Receive Date: 20040719
  Receipt Date: 20040616
  Transmission Date: 20050211
  Serious: Yes (Hospitalization)
  Sender: FDA-Public Use
  Company Number: JP-MERCK-0406USA01944

PATIENT
  Age: 76 Year
  Sex: Male

DRUGS (12)
  1. LENDORM [Concomitant]
     Route: 048
  2. CLARITHROMYCIN [Suspect]
     Indication: PNEUMONIA
     Route: 048
     Dates: start: 20040605, end: 20040618
  3. MEDICON [Concomitant]
     Route: 048
     Dates: start: 20040605, end: 20040618
  4. PEPCID RPD [Suspect]
     Indication: ABDOMINAL PAIN
     Route: 048
     Dates: start: 20040612, end: 20040612
  5. HERBS (UNSPECIFIED) [Concomitant]
     Route: 048
     Dates: start: 20040605, end: 20040618
  6. FORSENID [Concomitant]
     Route: 048
  7. SOLON [Concomitant]
     Route: 048
  8. THIATON [Concomitant]
     Indication: ABDOMINAL PAIN
     Route: 048
     Dates: start: 20040615, end: 20040615
  9. THIATON [Concomitant]
     Route: 048
     Dates: start: 20040612, end: 20040612
  10. THIATON [Concomitant]
     Indication: ABDOMINAL PAIN UPPER
     Route: 048
     Dates: start: 20040615, end: 20040615
  11. THIATON [Concomitant]
     Route: 048
     Dates: start: 20040612, end: 20040612
  12. WARFARIN SODIUM [Concomitant]
     Route: 048

REACTIONS (2)
  - DRUG ERUPTION [None]
  - OEDEMA PERIPHERAL [None]
